FAERS Safety Report 5446443-9 (Version None)
Quarter: 2007Q3

REPORT INFORMATION
  Report Type: 
  Country: None (occurrence: None)
  Receive Date: 20070907
  Receipt Date: 20070823
  Transmission Date: 20080115
  Serious: Yes (Other)
  Sender: FDA-Public Use
  Company Number: SE-GENENTECH-246743

PATIENT
  Sex: Female

DRUGS (1)
  1. HERCEPTIN [Suspect]
     Indication: BREAST CANCER
     Dosage: 150 MG, UNKNOWN
     Route: 042
     Dates: start: 20060831, end: 20070619

REACTIONS (4)
  - BREAST NEOPLASM [None]
  - LOEFFLER'S SYNDROME [None]
  - LUNG INFILTRATION [None]
  - RADIATION PNEUMONITIS [None]
